FAERS Safety Report 4622142-8 (Version None)
Quarter: 2005Q1

REPORT INFORMATION
  Report Type: 
  Country: None (occurrence: None)
  Receive Date: 20050329
  Receipt Date: 20050314
  Transmission Date: 20050727
  Serious: Yes (Hospitalization, Other)
  Sender: FDA-Public Use
  Company Number: 2005045322

PATIENT
  Age: 71 Year
  Sex: Female

DRUGS (8)
  1. NEURONTIN [Suspect]
     Indication: NEUROPATHY
     Dosage: 300 MG (100 MG, 3 IN 1 D), ORAL
     Route: 048
  2. LIPITOR [Suspect]
     Indication: ILL-DEFINED DISORDER
     Dosage: 10 MG (10 MG, 1 IN 1 D), ORAL
     Route: 048
     Dates: start: 20040101, end: 20040101
  3. ALLOPURINOL [Concomitant]
  4. POTASSIUM ACETATE [Concomitant]
  5. ATENOLOL [Concomitant]
  6. ROSIGLITAZONE MALEATE [Concomitant]
  7. MAGNESIUM (MAGNESIUM) [Concomitant]
  8. INSULIN [Concomitant]

REACTIONS (8)
  - BLOOD BILIRUBIN INCREASED [None]
  - CARDIO-RESPIRATORY ARREST [None]
  - HYPERSENSITIVITY [None]
  - HYPOTENSION [None]
  - LUNG DISORDER [None]
  - PAIN IN EXTREMITY [None]
  - PHARMACEUTICAL PRODUCT COMPLAINT [None]
  - THROMBOSIS [None]
